FAERS Safety Report 4824456-5 (Version None)
Quarter: 2005Q4

REPORT INFORMATION
  Report Type: 
  Country: None (occurrence: None)
  Receive Date: 20051108
  Receipt Date: 20051021
  Transmission Date: 20060501
  Serious: Yes (Other)
  Sender: FDA-Public Use
  Company Number: USA0510111568

PATIENT
  Age: 49 Year
  Sex: Male
  Weight: 80 kg

DRUGS (4)
  1. CIALIS [Suspect]
     Indication: ERECTILE DYSFUNCTION
     Dosage: 5 MG/3 EVERY OTHER WEEK
  2. ASPIRIN [Concomitant]
  3. LOVASTATIN [Concomitant]
  4. MULTI-VITAMIN [Concomitant]

REACTIONS (6)
  - BLINDNESS TRANSIENT [None]
  - BLOOD GLUCOSE DECREASED [None]
  - DIZZINESS [None]
  - HEADACHE [None]
  - SYNCOPE [None]
  - TREATMENT NONCOMPLIANCE [None]
